FAERS Safety Report 22300896 (Version 1)
Quarter: 2023Q2

REPORT INFORMATION
  Report Type: Spontaneous
  Country: US (occurrence: US)
  Receive Date: 20230509
  Receipt Date: 20230509
  Transmission Date: 20230721
  Serious: No
  Sender: FDA-Public Use
  Company Number: US-SANOFI-01600574

PATIENT
  Age: 71 Year
  Sex: Female

DRUGS (2)
  1. TOUJEO [Suspect]
     Active Substance: INSULIN GLARGINE
     Indication: Type 2 diabetes mellitus
     Dosage: 35 IU
  2. OZEMPIC [Concomitant]
     Active Substance: SEMAGLUTIDE
     Indication: Cardiac disorder
     Dosage: UNK, QW

REACTIONS (1)
  - Expired device used [Unknown]
